FAERS Safety Report 12238730 (Version 1)
Quarter: 2016Q2

REPORT INFORMATION
  Report Type: Spontaneous
  Country: US (occurrence: None)
  Receive Date: 20160404
  Receipt Date: 20160404
  Transmission Date: 20160815
  Serious: Yes (Life-Threatening)
  Sender: FDA-Public Use
  Company Number: None

PATIENT
  Age: 62 Year
  Sex: Female
  Weight: 65 kg

DRUGS (1)
  1. BRENTUXIMAB VEDOTIN, 50 MG SEATTLE GENETICS [Suspect]
     Active Substance: BRENTUXIMAB VEDOTIN
     Indication: T-CELL LYMPHOMA
     Route: 040
     Dates: start: 20151112, end: 20160307

REACTIONS (4)
  - Seizure [None]
  - Thrombocytopenia [None]
  - Unresponsive to stimuli [None]
  - Streptococcus test positive [None]

NARRATIVE: CASE EVENT DATE: 20160324
